FAERS Safety Report 7629402-7 (Version None)
Quarter: 2011Q3

REPORT INFORMATION
  Report Type: 
  Country: None (occurrence: None)
  Receive Date: 20110722
  Receipt Date: 20110711
  Transmission Date: 20111222
  Serious: Yes (Other)
  Sender: FDA-Public Use
  Company Number: ES-JNJFOC-20110705273

PATIENT
  Age: 31 Year
  Sex: Female

DRUGS (4)
  1. ENTOCORD [Concomitant]
     Indication: CROHN'S DISEASE
     Dates: start: 20101207, end: 20110126
  2. REMICADE [Suspect]
     Indication: CROHN'S DISEASE
     Route: 042
     Dates: start: 20061013
  3. METHYLPREDNISOLONE [Concomitant]
     Indication: CROHN'S DISEASE
     Dates: start: 20110126, end: 20110411
  4. ADALIMUMAB [Concomitant]
     Indication: CROHN'S DISEASE
     Dates: start: 20070110, end: 20100722

REACTIONS (2)
  - MATERNAL EXPOSURE BEFORE PREGNANCY [None]
  - CAESAREAN SECTION [None]
